FAERS Safety Report 21387519 (Version 4)
Quarter: 2022Q4

REPORT INFORMATION
  Report Type: Report from Study
  Country: US (occurrence: None)
  Receive Date: 20220928
  Receipt Date: 20221227
  Transmission Date: 20230113
  Serious: Yes (Other)
  Sender: FDA-Public Use
  Company Number: US-Merck Healthcare KGaA-9349731

PATIENT
  Age: 65 Year
  Sex: Male

DRUGS (14)
  1. MAVENCLAD [Interacting]
     Active Substance: CLADRIBINE
     Indication: Multiple sclerosis
     Dosage: YEAR ONE MONTH ONE THERAPY
     Route: 048
     Dates: start: 20220831, end: 20220904
  2. MAVENCLAD [Interacting]
     Active Substance: CLADRIBINE
     Dosage: YEAR ONE MONTH TWO THERAPY: 20 MG SO FAR AS OF 30 SEP 2022
     Route: 048
     Dates: start: 20220930, end: 20221004
  3. MIRALAX [Interacting]
     Active Substance: POLYETHYLENE GLYCOL 3350
     Indication: Constipation
     Dates: end: 20220904
  4. METAMUCIL [Concomitant]
     Active Substance: PLANTAGO SEED
     Indication: Product used for unknown indication
  5. ERGOCALCIFEROL [Concomitant]
     Active Substance: ERGOCALCIFEROL
     Indication: Product used for unknown indication
  6. VITAMIN C [Concomitant]
     Active Substance: ASCORBIC ACID
     Indication: Product used for unknown indication
  7. DILTIAZEM [Concomitant]
     Active Substance: DILTIAZEM
     Indication: Blood pressure abnormal
  8. ATORVASTATIN [Concomitant]
     Active Substance: ATORVASTATIN
     Indication: Blood cholesterol increased
  9. PROAIR HFA [Concomitant]
     Active Substance: ALBUTEROL SULFATE
     Indication: Asthma
  10. SINGULAIR [Concomitant]
     Active Substance: MONTELUKAST SODIUM
     Indication: Asthma
  11. NASACORT [Concomitant]
     Active Substance: TRIAMCINOLONE ACETONIDE
     Indication: Asthma
  12. TRELEGY ELLIPTA [Concomitant]
     Active Substance: FLUTICASONE FUROATE\UMECLIDINIUM BROMIDE\VILANTEROL TRIFENATATE
     Indication: Asthma
  13. TADALAFIL [Concomitant]
     Active Substance: TADALAFIL
     Indication: Prostatomegaly
  14. TRAMADOL [Concomitant]
     Active Substance: TRAMADOL
     Indication: Pain

REACTIONS (18)
  - Drug interaction [Unknown]
  - Clostridium difficile infection [Recovered/Resolved]
  - Gastrointestinal inflammation [Unknown]
  - Diarrhoea [Unknown]
  - Abdominal pain upper [Unknown]
  - Nausea [Unknown]
  - Vomiting [Unknown]
  - Abdominal discomfort [Unknown]
  - Abdominal distension [Unknown]
  - Abnormal faeces [Recovering/Resolving]
  - Constipation [Unknown]
  - Oesophageal discomfort [Recovered/Resolved]
  - Oropharyngeal discomfort [Unknown]
  - Weight decreased [Unknown]
  - X-ray gastrointestinal tract abnormal [Unknown]
  - Pollakiuria [Unknown]
  - Feeling abnormal [Unknown]
  - Product administration error [Unknown]

NARRATIVE: CASE EVENT DATE: 20220903
